FAERS Safety Report 8262655-3 (Version None)
Quarter: 2012Q2

REPORT INFORMATION
  Report Type: 
  Country: None (occurrence: None)
  Receive Date: 20120405
  Receipt Date: 20120321
  Transmission Date: 20120825
  Serious: Yes (Other)
  Sender: FDA-Public Use
  Company Number: FR-WATSON-2012-03863

PATIENT
  Age: 38 Year
  Sex: Female

DRUGS (1)
  1. KETOPROFEN [Suspect]
     Indication: MIGRAINE
     Dosage: UNK
     Route: 065

REACTIONS (2)
  - ANAPHYLACTIC REACTION [None]
  - PREDISPOSITION TO DISEASE [None]
